FAERS Safety Report 21021645 (Version 1)
Quarter: 2022Q2

REPORT INFORMATION
  Report Type: Spontaneous
  Country: CN (occurrence: CN)
  Receive Date: 20220629
  Receipt Date: 20220629
  Transmission Date: 20220721
  Serious: Yes (Hospitalization, Other)
  Sender: FDA-Public Use
  Company Number: None

PATIENT
  Age: 13 Year
  Sex: Female
  Weight: 39 kg

DRUGS (6)
  1. CYCLOPHOSPHAMIDE [Suspect]
     Active Substance: CYCLOPHOSPHAMIDE
     Indication: Precursor T-lymphoblastic lymphoma/leukaemia
     Dosage: 0.57 G ONCE DAILY, INJECTION,CYCLOPHOSPHAMIDE 0.57G + 5% GLUCOSE INJECTION 100ML
     Route: 041
     Dates: start: 20220605, end: 20220609
  2. DEXTROSE [Suspect]
     Active Substance: DEXTROSE
     Indication: Medication dilution
     Dosage: 100.000000MG ONCE DAILY, INJECTION,CYCLOPHOSPHAMIDE 0.57G + 5% GLUCOSE INJECTION 100ML
     Route: 041
     Dates: start: 20220605, end: 20220609
  3. BORTEZOMIB [Suspect]
     Active Substance: BORTEZOMIB
     Indication: Precursor T-lymphoblastic lymphoma/leukaemia
     Dosage: 1.70,000 MG ONCE DAILY,BORTEZOMIB 1.7 MG + 0.9% SODIUM CHLORIDE INJECTION (10ML)
     Route: 042
     Dates: start: 20220605, end: 20220605
  4. BORTEZOMIB [Suspect]
     Active Substance: BORTEZOMIB
     Dosage: 1.70,000 MG ONCE DAILY,BORTEZOMIB 1.7 MG + 0.9% SODIUM CHLORIDE INJECTION (10ML)
     Route: 042
     Dates: start: 20220608, end: 20220608
  5. SODIUM CHLORIDE [Suspect]
     Active Substance: SODIUM CHLORIDE
     Indication: Medication dilution
     Dosage: 10..000000ML ONCE DAILY,BORTEZOMIB 1.7 MG + 0.9% SODIUM CHLORIDE INJECTION (10ML)
     Route: 042
     Dates: start: 20220605, end: 20220605
  6. SODIUM CHLORIDE [Suspect]
     Active Substance: SODIUM CHLORIDE
     Dosage: 10..000000ML ONCE DAILY,BORTEZOMIB 1.7 MG + 0.9% SODIUM CHLORIDE INJECTION (10ML)
     Route: 042
     Dates: start: 20220608, end: 20220608

REACTIONS (5)
  - Hypokalaemia [Recovering/Resolving]
  - Inappropriate antidiuretic hormone secretion [Recovering/Resolving]
  - Headache [Recovering/Resolving]
  - Dizziness [Recovering/Resolving]
  - Nausea [Recovering/Resolving]

NARRATIVE: CASE EVENT DATE: 20220608
